FAERS Safety Report 16248997 (Version 1)
Quarter: 2019Q2

REPORT INFORMATION
  Report Type: Other
  Country: CA (occurrence: CA)
  Receive Date: 20190429
  Receipt Date: 20190429
  Transmission Date: 20190711
  Serious: Yes (Hospitalization)
  Sender: FDA-Public Use
  Company Number: CA-PURDUE PHARMA-CAN-2019-0010009

PATIENT
  Age: 30 Year
  Sex: Female

DRUGS (1)
  1. HYDROMORPHONE HYDROCHLORIDE. [Suspect]
     Active Substance: HYDROMORPHONE HYDROCHLORIDE
     Indication: POST-TRAUMATIC PAIN
     Dosage: UNK
     Route: 065

REACTIONS (2)
  - Post-traumatic pain [Unknown]
  - Therapeutic response decreased [Unknown]
